FAERS Safety Report 5727669-3 (Version None)
Quarter: 2008Q2

REPORT INFORMATION
  Report Type: 
  Country: None (occurrence: None)
  Receive Date: 20080505
  Receipt Date: 20080422
  Transmission Date: 20081010
  Serious: Yes (Death, Congenital Anomaly)
  Sender: FDA-Public Use
  Company Number: B0518025B

PATIENT
  Sex: Male

DRUGS (6)
  1. LAMICTAL [Suspect]
     Dosage: 100MG PER DAY
     Dates: end: 20080408
  2. URBANYL [Suspect]
     Dosage: 10MG PER DAY
     Dates: end: 20080408
  3. ALEPSAL [Suspect]
     Dosage: 150MG PER DAY
     Dates: end: 20080408
  4. VALIUM [Suspect]
     Dates: end: 20080408
  5. DI-HYDAN [Suspect]
     Dosage: 300MG PER DAY
     Dates: end: 20080408
  6. ZYPREXA [Suspect]
     Dosage: 1UNIT PER DAY
     Dates: end: 20080408

REACTIONS (3)
  - CEREBRAL VENTRICLE DILATATION [None]
  - CONGENITAL CENTRAL NERVOUS SYSTEM ANOMALY [None]
  - DRUG EXPOSURE DURING PREGNANCY [None]
